FAERS Safety Report 19055379 (Version 1)
Quarter: 2021Q1

REPORT INFORMATION
  Report Type: Spontaneous
  Country: US (occurrence: US)
  Receive Date: 20210324
  Receipt Date: 20210324
  Transmission Date: 20210420
  Serious: Yes (Hospitalization)
  Sender: FDA-Public Use
  Company Number: None

PATIENT
  Age: 71 Year
  Sex: Male

DRUGS (4)
  1. CEPHALEXIN. [Concomitant]
     Active Substance: CEPHALEXIN
  2. METOLAZONE. [Concomitant]
     Active Substance: METOLAZONE
  3. VYNDAMAX [Suspect]
     Active Substance: TAFAMIDIS
     Indication: MYELOID LEUKAEMIA
     Route: 048
     Dates: start: 20200218
  4. DIPHEN/ATROP [Concomitant]
     Active Substance: ATROPINE SULFATE\DIPHENOXYLATE

REACTIONS (3)
  - Pulmonary oedema [None]
  - Hand fracture [None]
  - Renal disorder [None]

NARRATIVE: CASE EVENT DATE: 20210315
